FAERS Safety Report 9553501 (Version 4)
Quarter: 2015Q4

REPORT INFORMATION
  Report Type: Spontaneous
  Country: CA (occurrence: CA)
  Receive Date: 20130925
  Receipt Date: 20151014
  Transmission Date: 20160305
  Serious: Yes (Other)
  Sender: FDA-Public Use
  Company Number: CA-PFIZER INC-2013273622

PATIENT
  Age: 49 Year
  Sex: Female

DRUGS (5)
  1. SANDOSTATIN LAR DEPOT [Concomitant]
     Active Substance: OCTREOTIDE ACETATE
     Dosage: 40 MG, MONTHLY
  2. SOMAVERT [Suspect]
     Active Substance: PEGVISOMANT
     Dosage: 20 MG, 1X/DAY
     Dates: start: 2011
  3. SOMAVERT [Suspect]
     Active Substance: PEGVISOMANT
     Dosage: 40 MG, ALTERNATE DAY AT NIGHT
     Dates: start: 201304
  4. SOMAVERT [Suspect]
     Active Substance: PEGVISOMANT
     Dosage: 30MG EVERY SECOND DAY AND 15MG ON ALTERNATING DAYS
     Dates: start: 201501, end: 20150512
  5. SOMAVERT [Suspect]
     Active Substance: PEGVISOMANT
     Dosage: 25 MG, EVERY SECOND DAY
     Dates: start: 20150513

REACTIONS (5)
  - Headache [Not Recovered/Not Resolved]
  - Neoplasm [Unknown]
  - Abdominal distension [Not Recovered/Not Resolved]
  - Off label use [Unknown]
  - Weight increased [Not Recovered/Not Resolved]

NARRATIVE: CASE EVENT DATE: 2011
